FAERS Safety Report 20893410 (Version 1)
Quarter: 2022Q2

REPORT INFORMATION
  Report Type: Spontaneous
  Country: CA (occurrence: CA)
  Receive Date: 20220531
  Receipt Date: 20220531
  Transmission Date: 20220721
  Serious: Yes (Death, Hospitalization, Other)
  Sender: FDA-Public Use
  Company Number: CA-TEVA-2022-CA-2041725

PATIENT
  Age: 62 Year
  Sex: Female

DRUGS (12)
  1. SILDENAFIL CITRATE [Suspect]
     Active Substance: SILDENAFIL CITRATE
     Indication: Pulmonary arterial hypertension
     Route: 048
  2. BISOPROLOL [Concomitant]
     Active Substance: BISOPROLOL
  3. ELIQUIS [Concomitant]
     Active Substance: APIXABAN
  4. FERROUS GLUCONATE [Concomitant]
     Active Substance: FERROUS GLUCONATE
  5. FUROSEMIDE [Concomitant]
     Active Substance: FUROSEMIDE
  6. INSULIN NOS [Concomitant]
     Active Substance: INSULIN NOS
     Route: 048
  7. OPSUMIT [Concomitant]
     Active Substance: MACITENTAN
  8. PANTOPRAZOLE [Concomitant]
     Active Substance: PANTOPRAZOLE
  9. POTASSIUM CHLORIDE [Concomitant]
     Active Substance: POTASSIUM CHLORIDE
  10. ROSUVASTATIN [Concomitant]
     Active Substance: ROSUVASTATIN
  11. TRACLEER [BOSENTAN [Concomitant]
  12. VENLAFAXINE [Concomitant]
     Active Substance: VENLAFAXINE HYDROCHLORIDE

REACTIONS (6)
  - Death [Fatal]
  - Hip fracture [Fatal]
  - Liver function test increased [Fatal]
  - Malaise [Fatal]
  - Nausea [Fatal]
  - Vomiting [Fatal]
